FAERS Safety Report 7080694-5 (Version None)
Quarter: 2010Q4

REPORT INFORMATION
  Report Type: 
  Country: None (occurrence: None)
  Receive Date: 20101103
  Receipt Date: 20101025
  Transmission Date: 20110411
  Serious: Yes (Hospitalization)
  Sender: FDA-Public Use
  Company Number: FR-NOVOPROD-317323

PATIENT
  Age: 73 Year
  Sex: Male

DRUGS (18)
  1. NOVONORM [Suspect]
     Indication: TYPE 2 DIABETES MELLITUS
     Dosage: 3 MG, QD
     Route: 048
  2. STAGID [Suspect]
     Dosage: 2100 MG, QD
     Route: 048
  3. VOLTARENE                          /00372302/ [Suspect]
     Dosage: 1 TAB, QD
     Route: 048
  4. TANGANIL                           /00129601/ [Suspect]
     Dosage: 1000 MG, QD
     Route: 048
  5. VASTAREL [Suspect]
     Dosage: 70 MG, QD
     Route: 048
  6. ELISOR [Suspect]
     Dosage: 40 MG, QD
     Route: 048
  7. TENORMIN [Suspect]
     Dosage: 200 MG, QD
     Route: 048
  8. EUROBIOL                           /00014701/ [Suspect]
     Dosage: 50000 U, QD
     Route: 048
  9. COVERSYL                           /00790701/ [Suspect]
     Dosage: 2.5 MG, QD
     Route: 048
  10. KARDEGIC                           /00002703/ [Suspect]
     Dosage: 160 MG, QD
     Route: 048
  11. FORADIL                            /00958001/ [Suspect]
     Dosage: 1 PUFF, BID MORNING AND EVENING
  12. STABLON                            /00956301/ [Suspect]
     Dosage: 1 TAB, QD IN THE MORNING
     Route: 048
  13. CEFPODOXIME PROXETIL [Suspect]
     Indication: OTITIS EXTERNA
     Dosage: UNK
     Dates: start: 20100828
  14. ORBENIN CAP [Suspect]
  15. SOLUPRED                           /00016201/ [Concomitant]
     Indication: OTITIS EXTERNA
     Dosage: 40 MG, QD
     Dates: start: 20100821
  16. IXPRIM [Concomitant]
     Indication: OTITIS EXTERNA
     Dosage: UNK
     Dates: start: 20100821
  17. POLYDEXA                           /00803901/ [Concomitant]
     Dosage: UNK
     Dates: start: 20100905
  18. CIPROFLOXACIN HCL [Concomitant]
     Dosage: UNK
     Dates: start: 20100910

REACTIONS (1)
  - ANAEMIA HAEMOLYTIC AUTOIMMUNE [None]
